FAERS Safety Report 9312898 (Version 1)
Quarter: 2013Q2

REPORT INFORMATION
  Report Type: Spontaneous
  Country: UA (occurrence: UA)
  Receive Date: 20130528
  Receipt Date: 20130528
  Transmission Date: 20140414
  Serious: Yes (Other)
  Sender: FDA-Public Use
  Company Number: UA-ASTRAZENECA-2013SE35053

PATIENT
  Age: 30 Year
  Sex: Female

DRUGS (2)
  1. LISINOPRIL [Suspect]
     Route: 048
  2. FUROSEMIDE [Concomitant]
     Route: 048

REACTIONS (1)
  - Hepatotoxicity [Recovered/Resolved]
